FAERS Safety Report 22666928 (Version 2)
Quarter: 2024Q1

REPORT INFORMATION
  Report Type: Spontaneous
  Country: US (occurrence: US)
  Receive Date: 20230704
  Receipt Date: 20240308
  Transmission Date: 20240410
  Serious: Yes (Other)
  Sender: FDA-Public Use
  Company Number: US-ABBVIE-5313731

PATIENT
  Sex: Female

DRUGS (2)
  1. BIAXIN [Suspect]
     Active Substance: CLARITHROMYCIN
     Indication: Product used for unknown indication
     Route: 048
  2. AROMASIN [Concomitant]
     Active Substance: EXEMESTANE
     Indication: Product used for unknown indication

REACTIONS (6)
  - Breast cancer female [Not Recovered/Not Resolved]
  - Oestrogen receptor assay positive [Unknown]
  - Pruritus [Unknown]
  - Vomiting [Unknown]
  - Anaphylactic reaction [Unknown]
  - Nausea [Unknown]

NARRATIVE: CASE EVENT DATE: 20150527
